FAERS Safety Report 8071267-6 (Version None)
Quarter: 2012Q1

REPORT INFORMATION
  Report Type: 
  Country: None (occurrence: None)
  Receive Date: 20120125
  Receipt Date: 20120113
  Transmission Date: 20120608
  Serious: Yes (Hospitalization)
  Sender: FDA-Public Use
  Company Number: US-PFIZER INC-2011279967

PATIENT
  Sex: Female
  Weight: 51.2 kg

DRUGS (14)
  1. CLONAZEPAM [Concomitant]
     Indication: ANXIETY
  2. CLONAZEPAM [Concomitant]
     Indication: INSOMNIA
  3. ZETIA [Concomitant]
     Indication: DYSLIPIDAEMIA
  4. ACETAMINOPHEN [Concomitant]
     Indication: MUSCULOSKELETAL CHEST PAIN
  5. DULCOLAX [Concomitant]
     Indication: CONSTIPATION
  6. LORATADINE [Concomitant]
     Indication: SEASONAL ALLERGY
  7. CRIZOTINIB [Suspect]
     Indication: NON-SMALL CELL LUNG CANCER
     Dosage: 250 MG, 2X/DAY
     Route: 048
     Dates: start: 20110525, end: 20111111
  8. NITROGLYCERIN [Concomitant]
     Indication: ANGINA PECTORIS
  9. CALCIUM CARBONATE [Concomitant]
     Indication: SUPPLEMENTATION THERAPY
  10. ASPIRIN [Suspect]
     Dosage: 81 MG, 1X/DAY
     Route: 048
     Dates: start: 20080326
  11. TRAMADOL [Concomitant]
     Indication: MUSCULOSKELETAL CHEST PAIN
  12. FAMOTIDINE [Concomitant]
     Indication: GASTROOESOPHAGEAL REFLUX DISEASE
  13. PLAVIX [Suspect]
     Dosage: 75 MG, 1X/DAY
     Route: 048
     Dates: start: 20081119, end: 20111111
  14. SENNA [Concomitant]
     Indication: CONSTIPATION

REACTIONS (2)
  - GASTROINTESTINAL HAEMORRHAGE [None]
  - OESOPHAGITIS [None]
